FAERS Safety Report 25245730 (Version 1)
Quarter: 2025Q2

REPORT INFORMATION
  Report Type: Spontaneous
  Country: US (occurrence: US)
  Receive Date: 20250428
  Receipt Date: 20250428
  Transmission Date: 20250716
  Serious: No
  Sender: ELI LILLY AND COMPANY
  Company Number: US-ELI_LILLY_AND_COMPANY-US202504022188

PATIENT
  Age: 34 Year
  Sex: Female

DRUGS (1)
  1. TALTZ [Suspect]
     Active Substance: IXEKIZUMAB
     Indication: Psoriasis
     Route: 065
     Dates: start: 20250411

REACTIONS (7)
  - Blood pressure increased [Unknown]
  - Gait inability [Unknown]
  - Pyrexia [Unknown]
  - Injection site pain [Unknown]
  - Injection site reaction [Recovered/Resolved]
  - Hypersensitivity [Unknown]
  - Nausea [Unknown]

NARRATIVE: CASE EVENT DATE: 20250411
